FAERS Safety Report 9305150 (Version 1)
Quarter: 2013Q2

REPORT INFORMATION
  Report Type: Spontaneous
  Country: CA (occurrence: CA)
  Receive Date: 20130523
  Receipt Date: 20130523
  Transmission Date: 20140414
  Serious: Yes (Hospitalization)
  Sender: FDA-Public Use
  Company Number: PHHY2013CA051386

PATIENT
  Sex: Female

DRUGS (1)
  1. EXELON PATCH [Suspect]
     Dosage: 9.5 MG
     Route: 062

REACTIONS (9)
  - Blood pressure fluctuation [Unknown]
  - Hyperhidrosis [Unknown]
  - Fatigue [Unknown]
  - Malaise [Unknown]
  - Somnolence [Unknown]
  - Asthenia [Unknown]
  - Heart rate irregular [Unknown]
  - Chest pain [Unknown]
  - Abdominal pain upper [Unknown]
